FAERS Safety Report 12883026 (Version 3)
Quarter: 2017Q2

REPORT INFORMATION
  Report Type: Spontaneous
  Country: US (occurrence: US)
  Receive Date: 20161025
  Receipt Date: 20170523
  Transmission Date: 20170830
  Serious: Yes (Other)
  Sender: FDA-Public Use
  Company Number: US-BAYER-2016-204933

PATIENT
  Sex: Male

DRUGS (4)
  1. INH [Concomitant]
     Active Substance: ISONIAZID
     Dosage: 300 MG, QD
     Dates: start: 19980714
  2. RIFAMPICIN [Concomitant]
     Active Substance: RIFAMPIN
     Dosage: 300 MG, QD
     Dates: start: 19980714
  3. ETHAMBUTOL [Concomitant]
     Active Substance: ETHAMBUTOL HYDROCHLORIDE
     Dosage: 1200 MG, QD
     Dates: start: 19980714
  4. CIPRO [Suspect]
     Active Substance: CIPROFLOXACIN HYDROCHLORIDE
     Indication: PRODUCT USED FOR UNKNOWN INDICATION
     Dosage: 500 MG, BID
     Dates: start: 19980717

REACTIONS (1)
  - Aortic aneurysm [Unknown]
